FAERS Safety Report 20797167 (Version 2)
Quarter: 2022Q3

REPORT INFORMATION
  Report Type: Spontaneous
  Country: US (occurrence: US)
  Receive Date: 20220506
  Receipt Date: 20220721
  Transmission Date: 20221026
  Serious: Yes (Other)
  Sender: FDA-Public Use
  Company Number: US-BRISTOL-MYERS SQUIBB COMPANY-2022-021553

PATIENT
  Age: 74 Year
  Sex: Male

DRUGS (4)
  1. POMALYST [Suspect]
     Active Substance: POMALIDOMIDE
     Indication: Anticoagulant therapy
     Dosage: D1-21 OF 28 DAYS
     Route: 048
     Dates: start: 20200428, end: 20210513
  2. CYANOCOBALAMIN [Concomitant]
     Active Substance: CYANOCOBALAMIN
     Indication: Product used for unknown indication
     Route: 058
  3. FLUTICASONE PROPIONATE [Concomitant]
     Active Substance: FLUTICASONE PROPIONATE
     Indication: Inflammation
     Dosage: ONE PUFF VIA INHALATION TWICE DAILY FOR AIRWAY INFLAMMATION-NOT TO EXCEED TWO PUFFS PER DAY AS NEEDE
     Route: 055
     Dates: start: 20190425
  4. VENTOLIN [Concomitant]
     Active Substance: ALBUTEROL SULFATE
     Indication: Dyspnoea
     Dosage: 2 PUFFS EVERY 4 HOURS AS NEEDED
     Route: 065
     Dates: start: 20180820

REACTIONS (3)
  - Acute lymphocytic leukaemia [Unknown]
  - Product dose omission issue [Unknown]
  - Intentional product use issue [Unknown]

NARRATIVE: CASE EVENT DATE: 20220510
